FAERS Safety Report 10730429 (Version 2)
Quarter: 2015Q1

REPORT INFORMATION
  Report Type: Spontaneous
  Country: JP (occurrence: JP)
  Receive Date: 20150122
  Receipt Date: 20150226
  Transmission Date: 20150721
  Serious: Yes (Hospitalization)
  Sender: FDA-Public Use
  Company Number: PHJP2015JP000459

PATIENT
  Age: 78 Year
  Sex: Male

DRUGS (3)
  1. PRAZAXA [Interacting]
     Active Substance: DABIGATRAN ETEXILATE MESYLATE
     Indication: ATRIAL FIBRILLATION
     Dosage: 300 MG, QD
     Route: 048
  2. WARFARIN [Concomitant]
     Active Substance: WARFARIN
     Indication: ATRIAL FIBRILLATION
     Route: 065
  3. TEGRETOL [Suspect]
     Active Substance: CARBAMAZEPINE
     Indication: TRIGEMINAL NEURALGIA
     Route: 048

REACTIONS (8)
  - Peripheral artery thrombosis [Recovering/Resolving]
  - Skin discolouration [Recovered/Resolved]
  - Thrombosis [Recovering/Resolving]
  - Musculoskeletal stiffness [Unknown]
  - Drug interaction [Unknown]
  - Peripheral coldness [Recovering/Resolving]
  - Discomfort [Recovering/Resolving]
  - Lethargy [Recovered/Resolved]
